FAERS Safety Report 9305742 (Version 2)
Quarter: 2013Q2

REPORT INFORMATION
  Report Type: Report from Study
  Country: US (occurrence: US)
  Receive Date: 20130523
  Receipt Date: 20130604
  Transmission Date: 20140414
  Serious: Yes (Hospitalization)
  Sender: FDA-Public Use
  Company Number: US-ACTELION-A-NJ2010-39540

PATIENT
  Age: 84 Year
  Sex: Female

DRUGS (5)
  1. TRACLEER [Suspect]
     Indication: PULMONARY ARTERIAL HYPERTENSION
     Dosage: UNK MG, UNK
     Route: 048
     Dates: start: 200910
  2. TRACLEER [Suspect]
     Dosage: 62.5 MG, BID
     Route: 048
     Dates: start: 20080619, end: 200910
  3. REVATIO [Concomitant]
  4. ASA [Concomitant]
  5. PLAVIX [Concomitant]

REACTIONS (6)
  - Chronic obstructive pulmonary disease [Unknown]
  - Respiratory failure [Unknown]
  - Dyspnoea [Recovering/Resolving]
  - Pulmonary arterial hypertension [Unknown]
  - Disease progression [Unknown]
  - Asthenia [Recovering/Resolving]
